FAERS Safety Report 9343671 (Version 2)
Quarter: 2013Q3

REPORT INFORMATION
  Report Type: Spontaneous
  Country: US (occurrence: US)
  Receive Date: 20130612
  Receipt Date: 20130716
  Transmission Date: 20140515
  Serious: No
  Sender: FDA-Public Use
  Company Number: US-009507513-1306USA004645

PATIENT
  Age: 32 Year
  Sex: Female

DRUGS (1)
  1. GANIRELIX ACETATE INJECTION [Suspect]
     Dosage: 0.5 ML, FOUR DOSE SERIES
     Route: 058
     Dates: start: 20130606

REACTIONS (4)
  - Underdose [Unknown]
  - Extra dose administered [Unknown]
  - Product quality issue [Unknown]
  - No adverse event [Unknown]
